FAERS Safety Report 21403404 (Version 1)
Quarter: 2022Q4

REPORT INFORMATION
  Report Type: Spontaneous
  Country: US (occurrence: None)
  Receive Date: 20221001
  Receipt Date: 20221001
  Transmission Date: 20230112
  Serious: Yes (Disabling, Other)
  Sender: FDA-Public Use
  Company Number: None

PATIENT
  Age: 23 Year
  Sex: Male
  Weight: 99 kg

DRUGS (4)
  1. BUPROPION [Suspect]
     Active Substance: BUPROPION
     Indication: Smoking cessation therapy
     Dosage: FREQUENCY : DAILY;?
     Route: 048
     Dates: start: 20161001, end: 20170630
  2. DESCOVY [Concomitant]
     Active Substance: EMTRICITABINE\TENOFOVIR ALAFENAMIDE FUMARATE
  3. VYVANSE [Concomitant]
     Active Substance: LISDEXAMFETAMINE DIMESYLATE
  4. CIALIS [Concomitant]
     Active Substance: TADALAFIL

REACTIONS (3)
  - Dysphemia [None]
  - Mental impairment [None]
  - Nervous system disorder [None]

NARRATIVE: CASE EVENT DATE: 20170202
